FAERS Safety Report 7488044-7 (Version None)
Quarter: 2011Q2

REPORT INFORMATION
  Report Type: 
  Country: None (occurrence: None)
  Receive Date: 20110518
  Receipt Date: 20110516
  Transmission Date: 20111010
  Serious: No
  Sender: FDA-Public Use
  Company Number: US-PFIZER INC-2011104672

PATIENT
  Sex: Male
  Weight: 104.31 kg

DRUGS (6)
  1. MS CONTIN [Concomitant]
     Dosage: 15 MG, UNK
  2. SUTENT [Suspect]
     Dosage: 50 MG, 1X/DAY (ON DAYS 1- 28)
     Route: 048
  3. MORPHINE SULFATE [Concomitant]
     Dosage: 100 MG, UNK
  4. ATENOLOL [Concomitant]
     Dosage: 25 MG, UNK
  5. HYDROMORPHONE [Concomitant]
     Dosage: 4 MG, UNK
  6. NORVASC [Concomitant]
     Dosage: 5 MG, UNK

REACTIONS (1)
  - FATIGUE [None]
